FAERS Safety Report 5006548-3 (Version None)
Quarter: 2006Q2

REPORT INFORMATION
  Report Type: 
  Country: None (occurrence: None)
  Receive Date: 20060519
  Receipt Date: 20060504
  Transmission Date: 20061013
  Serious: Yes (Hospitalization)
  Sender: FDA-Public Use
  Company Number: ES-RB-3287-2006

PATIENT
  Age: 74 Year
  Sex: Male

DRUGS (1)
  1. BUPRENORPHINE HCL [Suspect]
     Indication: PAIN
     Dosage: TRANSDERMAL BUPRENORPHINE - INCREASING DOSAGES REACHING 52.5UG H - PATCH CHANGE EVERY 3 DAYS.
     Route: 062

REACTIONS (2)
  - ACUTE MYOCARDIAL INFARCTION [None]
  - DISCOMFORT [None]
